FAERS Safety Report 13969611 (Version 1)
Quarter: 2017Q3

REPORT INFORMATION
  Report Type: Spontaneous
  Country: US (occurrence: US)
  Receive Date: 20170914
  Receipt Date: 20170914
  Transmission Date: 20171128
  Serious: No
  Sender: FDA-Public Use
  Company Number: US-GLAXOSMITHKLINE-US2017138825

PATIENT
  Age: 79 Year
  Sex: Male

DRUGS (1)
  1. TRANSDERM SCOP [Suspect]
     Active Substance: SCOPOLAMINE
     Indication: MOTION SICKNESS
     Dosage: UNK
     Route: 062

REACTIONS (3)
  - Wrong technique in product usage process [Unknown]
  - Chronic obstructive pulmonary disease [Not Recovered/Not Resolved]
  - Dizziness [Recovered/Resolved]
